FAERS Safety Report 8954634 (Version 1)
Quarter: 2012Q4

REPORT INFORMATION
  Report Type: 
  Country: US (occurrence: US)
  Receive Date: 20121207
  Receipt Date: 20121207
  Transmission Date: 20130627
  Serious: Yes (Other)
  Sender: FDA-Public Use
  Company Number: US-TARO-2012P1060102

PATIENT
  Age: 37 Year
  Sex: Female

DRUGS (2)
  1. CLOTRIMAZOLE [Suspect]
     Dates: start: 2012
  2. SULFA [Suspect]
     Dates: start: 2012

REACTIONS (9)
  - Hypersensitivity [Unknown]
  - Bladder disorder [Not Recovered/Not Resolved]
  - Skin irritation [Not Recovered/Not Resolved]
  - Papilloma viral infection [Not Recovered/Not Resolved]
  - Vulvovaginal swelling [Unknown]
  - Infection [Unknown]
  - Throat tightness [Unknown]
  - Urticaria [Unknown]
  - Vaginal discharge [Not Recovered/Not Resolved]
